FAERS Safety Report 21635220 (Version 3)
Quarter: 2022Q4

REPORT INFORMATION
  Report Type: Report from Study
  Country: IL (occurrence: None)
  Receive Date: 20221123
  Receipt Date: 20221208
  Transmission Date: 20230113
  Serious: Yes (Hospitalization)
  Sender: FDA-Public Use
  Company Number: IL-Eisai Medical Research-EC-2022-119806

PATIENT
  Age: 64 Year
  Sex: Female
  Weight: 56.6 kg

DRUGS (8)
  1. LENVATINIB [Suspect]
     Active Substance: LENVATINIB
     Indication: Colorectal cancer
     Dosage: STARTING DOSE AT 20MG, FLUCTUATED DOSE
     Route: 048
     Dates: start: 20220106, end: 20220716
  2. LENVATINIB [Suspect]
     Active Substance: LENVATINIB
     Route: 048
     Dates: start: 20220906
  3. PEMBROLIZUMAB [Suspect]
     Active Substance: PEMBROLIZUMAB
     Indication: Colorectal cancer
     Route: 042
     Dates: start: 20220106, end: 20220627
  4. BELZUTIFAN [Suspect]
     Active Substance: BELZUTIFAN
     Indication: Colorectal cancer
     Route: 048
     Dates: start: 20220106, end: 20220716
  5. BELZUTIFAN [Suspect]
     Active Substance: BELZUTIFAN
     Route: 048
     Dates: start: 20220906
  6. METAMIZOLE [Concomitant]
     Active Substance: METAMIZOLE
     Dates: start: 202111
  7. METOCLOPRAMIDE HYDROCHLORIDE [Concomitant]
     Active Substance: METOCLOPRAMIDE HYDROCHLORIDE
     Dates: start: 20220416
  8. ENSURE [Concomitant]
     Active Substance: AMINO ACIDS\DEXTROSE\ELECTROLYTES NOS\SOYBEAN OIL\VITAMINS
     Dates: start: 20220508, end: 20220716

REACTIONS (3)
  - Haematuria [Not Recovered/Not Resolved]
  - Pneumonitis [Not Recovered/Not Resolved]
  - Anaemia [Not Recovered/Not Resolved]

NARRATIVE: CASE EVENT DATE: 20220710
